FAERS Safety Report 15298475 (Version 3)
Quarter: 2018Q3

REPORT INFORMATION
  Report Type: Report from Study
  Country: CA (occurrence: CA)
  Receive Date: 20180820
  Receipt Date: 20180828
  Transmission Date: 20181010
  Serious: Yes (Hospitalization, Other)
  Sender: FDA-Public Use
  Company Number: CA-GILEAD-2018-0357448

PATIENT
  Age: 34 Year
  Sex: Female

DRUGS (1)
  1. AZTREONAM LYSINE [Suspect]
     Active Substance: AZTREONAM LYSINE
     Indication: CYSTIC FIBROSIS
     Dosage: UNK
     Route: 055

REACTIONS (3)
  - Lung transplant [Unknown]
  - Lung infection [Unknown]
  - Lymphoma [Unknown]

NARRATIVE: CASE EVENT DATE: 201609
